FAERS Safety Report 8475394 (Version 2)
Quarter: 2012Q4

REPORT INFORMATION
  Report Type: 
  Country: US (occurrence: US)
  Receive Date: 20120326
  Receipt Date: 20121116
  Transmission Date: 20130627
  Serious: Yes (Other)
  Sender: FDA-Public Use
  Company Number: US-PFIZER INC-2012073336

PATIENT
  Age: 86 Year
  Sex: Female

DRUGS (3)
  1. NORVASC [Suspect]
     Indication: BLOOD PRESSURE ABNORMAL
     Dosage: 10 mg, daily
     Route: 048
  2. COUMADINE [Concomitant]
     Indication: ATRIAL FIBRILLATION
     Dosage: UNK
  3. ENALAPRIL [Concomitant]
     Indication: HEART DISORDER
     Dosage: UNK

REACTIONS (2)
  - Carpal tunnel syndrome [Unknown]
  - Depressed mood [Unknown]
